FAERS Safety Report 18118901 (Version 1)
Quarter: 2020Q3

REPORT INFORMATION
  Report Type: Spontaneous
  Country: CA (occurrence: CA)
  Receive Date: 20200806
  Receipt Date: 20200806
  Transmission Date: 20201103
  Serious: Yes (Hospitalization)
  Sender: FDA-Public Use
  Company Number: CA-PFIZER INC-2020298020

PATIENT
  Age: 1 Year
  Sex: Male

DRUGS (3)
  1. ATIVAN [Suspect]
     Active Substance: LORAZEPAM
     Indication: STATUS EPILEPTICUS
     Dosage: 1.5 MG, 3X/DAY
     Route: 042
  2. PROPOFOL. [Concomitant]
     Active Substance: PROPOFOL
     Route: 065
  3. DILANTIN [Suspect]
     Active Substance: PHENYTOIN
     Indication: STATUS EPILEPTICUS
     Dosage: 240 MG
     Route: 040

REACTIONS (5)
  - Off label use [Unknown]
  - Product use issue [Unknown]
  - Seizure [Unknown]
  - Incorrect route of product administration [Unknown]
  - Respiratory depression [Unknown]
